FAERS Safety Report 4989513-1 (Version None)
Quarter: 2006Q2

REPORT INFORMATION
  Report Type: 
  Country: None (occurrence: None)
  Receive Date: 20060502
  Receipt Date: 20051019
  Transmission Date: 20061013
  Serious: Yes (Hospitalization, Disabling)
  Sender: FDA-Public Use
  Company Number: US-MERCK-0510USA08295

PATIENT
  Age: 56 Year
  Sex: Male
  Weight: 106 kg

DRUGS (21)
  1. NORVASC [Concomitant]
     Indication: CARDIAC DISORDER
     Route: 048
     Dates: end: 20031031
  2. TYLENOL (CAPLET) [Concomitant]
     Indication: PAIN
     Route: 065
     Dates: start: 20000101
  3. ASPIRIN [Concomitant]
     Indication: PROPHYLAXIS
     Route: 065
     Dates: start: 20021101
  4. CLOTRIMAZOLE [Concomitant]
     Route: 065
  5. LOTREL [Concomitant]
     Indication: HYPERTENSION
     Route: 065
  6. PLAVIX [Concomitant]
     Indication: CARDIAC DISORDER
     Route: 065
     Dates: start: 20010509
  7. TRAMADOLOR [Concomitant]
     Indication: PAIN
     Route: 065
  8. VIAGRA [Concomitant]
     Indication: ERECTILE DYSFUNCTION
     Route: 065
  9. NORVASC [Concomitant]
     Route: 065
  10. CELEBREX [Concomitant]
     Route: 065
     Dates: start: 20000229, end: 20020321
  11. METHYLPREDNISOLONE [Concomitant]
     Indication: PAIN
     Route: 065
  12. NABUMETONE [Concomitant]
     Indication: PAIN
     Route: 065
     Dates: end: 20050901
  13. NEURONTIN [Concomitant]
     Route: 065
     Dates: start: 20000201, end: 20000901
  14. OXYCODONE [Concomitant]
     Route: 065
     Dates: start: 20030905, end: 20040901
  15. PROPOXYPHENE HYDROCHLORIDE [Concomitant]
     Indication: PAIN
     Route: 065
  16. HYDROCODONE HYDROCHLORIDE [Concomitant]
     Indication: PAIN
     Route: 065
     Dates: start: 20010531, end: 20040201
  17. ADVIL [Concomitant]
     Indication: PAIN
     Route: 065
     Dates: start: 20000901
  18. VIOXX [Suspect]
     Indication: ARTHRITIS
     Route: 048
     Dates: start: 20001206, end: 20031031
  19. VIOXX [Suspect]
     Route: 048
     Dates: start: 20001205, end: 20031031
  20. VIOXX [Suspect]
     Route: 048
     Dates: start: 20030922, end: 20030930
  21. ULTRAM [Concomitant]
     Indication: BREAKTHROUGH PAIN
     Route: 065
     Dates: start: 20001206

REACTIONS (15)
  - ANAEMIA [None]
  - ANGINA UNSTABLE [None]
  - ARTHRALGIA [None]
  - CAROTID ARTERY STENOSIS [None]
  - CEREBRAL INFARCTION [None]
  - CEREBROVASCULAR ACCIDENT [None]
  - CORONARY ARTERY DISEASE [None]
  - DIABETES MELLITUS [None]
  - HAEMORRHAGE [None]
  - MALLORY-WEISS SYNDROME [None]
  - MENISCUS LESION [None]
  - PRESCRIBED OVERDOSE [None]
  - SKELETAL INJURY [None]
  - THROMBOSIS [None]
  - TRANSIENT ISCHAEMIC ATTACK [None]
